FAERS Safety Report 7748338-4 (Version None)
Quarter: 2011Q3

REPORT INFORMATION
  Report Type: 
  Country: None (occurrence: None)
  Receive Date: 20110913
  Receipt Date: 20110908
  Transmission Date: 20111222
  Serious: Yes (Hospitalization, Other)
  Sender: FDA-Public Use
  Company Number: PHHY2011US40354

PATIENT
  Sex: Female

DRUGS (3)
  1. CHEMOTHERAPEUTICS NOS [Concomitant]
  2. BLOOD CELLS, PACKED HUMAN [Concomitant]
  3. EXJADE [Suspect]
     Dosage: 1500 MG, QD
     Route: 048

REACTIONS (7)
  - NERVOUSNESS [None]
  - CHEST PAIN [None]
  - GAIT DISTURBANCE [None]
  - PAIN IN EXTREMITY [None]
  - NECK PAIN [None]
  - RASH [None]
  - URTICARIA [None]
